FAERS Safety Report 8224627-4 (Version None)
Quarter: 2012Q1

REPORT INFORMATION
  Report Type: 
  Country: None (occurrence: None)
  Receive Date: 20120319
  Receipt Date: 20120305
  Transmission Date: 20120608
  Serious: Yes (Other)
  Sender: FDA-Public Use
  Company Number: US-GDP-12413224

PATIENT
  Age: 84 Year
  Sex: Female

DRUGS (3)
  1. ASPIRIN [Concomitant]
  2. DOXYCYCLINE [Suspect]
     Indication: DENTAL CARE
     Dosage: ORAL
     Route: 048
  3. LEVOTHYROXINE SODIUM [Concomitant]

REACTIONS (11)
  - SKIN PLAQUE [None]
  - ANTINUCLEAR ANTIBODY POSITIVE [None]
  - ANTI-SS-A ANTIBODY POSITIVE [None]
  - EPIDERMAL NECROSIS [None]
  - CUTANEOUS LUPUS ERYTHEMATOSUS [None]
  - SKIN LESION [None]
  - CONDITION AGGRAVATED [None]
  - PAPULE [None]
  - FATIGUE [None]
  - RASH ERYTHEMATOUS [None]
  - PARAKERATOSIS [None]
